FAERS Safety Report 24983136 (Version 1)
Quarter: 2025Q1

REPORT INFORMATION
  Report Type: Spontaneous
  Country: US (occurrence: US)
  Receive Date: 20250218
  Receipt Date: 20250218
  Transmission Date: 20250408
  Serious: No
  Sender: ROCHE
  Company Number: US-ROCHE-10000208983

PATIENT
  Sex: Male

DRUGS (3)
  1. XOLAIR [Suspect]
     Active Substance: OMALIZUMAB
     Indication: Idiopathic urticaria
     Dosage: STRENGTH: 150MG/ML, FORM: SINGLE DOSE PRE FILLED SYRING
     Route: 058
     Dates: start: 202203
  2. XOLAIR [Suspect]
     Active Substance: OMALIZUMAB
  3. SPRAVATO nasal spray (2/kit), SPRAVATO nasal spray (3/kit) [Concomitant]

REACTIONS (2)
  - Chest pain [Recovered/Resolved]
  - Panic attack [Unknown]
